FAERS Safety Report 7293357-8 (Version None)
Quarter: 2011Q1

REPORT INFORMATION
  Report Type: 
  Country: None (occurrence: None)
  Receive Date: 20110215
  Receipt Date: 20110204
  Transmission Date: 20110831
  Serious: Yes (Other)
  Sender: FDA-Public Use
  Company Number: ES-WATSON-2011-01550

PATIENT
  Age: 52 Year
  Sex: Female

DRUGS (1)
  1. SULFAMETHOXAZOLE AND TRIMETHOPRIM [Suspect]
     Indication: PRODUCT USED FOR UNKNOWN INDICATION
     Dosage: UNK

REACTIONS (11)
  - GENERALISED ERYTHEMA [None]
  - NAUSEA [None]
  - ANAPHYLACTIC REACTION [None]
  - HYPOTENSION [None]
  - RHINITIS [None]
  - ABDOMINAL PAIN [None]
  - METRORRHAGIA [None]
  - DIZZINESS [None]
  - WHEEZING [None]
  - DIARRHOEA [None]
  - URTICARIA [None]
